FAERS Safety Report 4308372-3 (Version None)
Quarter: 2004Q1

REPORT INFORMATION
  Report Type: 
  Country: None (occurrence: None)
  Receive Date: 20040301
  Receipt Date: 20040226
  Transmission Date: 20041129
  Serious: Yes (Hospitalization)
  Sender: FDA-Public Use
  Company Number: GB-GLAXOSMITHKLINE-A0499943A

PATIENT
  Age: 74 Year
  Sex: Male

DRUGS (6)
  1. NAVELBINE [Suspect]
     Indication: NON-SMALL CELL LUNG CANCER
     Route: 042
     Dates: start: 20031110
  2. CISPLATIN [Suspect]
     Indication: NON-SMALL CELL LUNG CANCER
     Route: 042
     Dates: start: 20031110
  3. SIMVASTATIN [Concomitant]
  4. DILTIAZEM [Concomitant]
  5. PARACETAMOL [Concomitant]
  6. RABEPRAZOLE SODIUM [Concomitant]

REACTIONS (8)
  - ANAEMIA [None]
  - BENIGN PROSTATIC HYPERPLASIA [None]
  - CONSTIPATION [None]
  - LEUKOPENIA [None]
  - NEUTROPENIA [None]
  - NEUTROPENIC SEPSIS [None]
  - PYREXIA [None]
  - URINARY RETENTION [None]
